FAERS Safety Report 8157737-0 (Version None)
Quarter: 2012Q1

REPORT INFORMATION
  Report Type: 
  Country: None (occurrence: None)
  Receive Date: 20120222
  Receipt Date: 20120216
  Transmission Date: 20120608
  Serious: Yes (Other)
  Sender: FDA-Public Use
  Company Number: DE-PFIZER INC-2012042769

PATIENT
  Sex: Female

DRUGS (2)
  1. VENLAFAXINE HCL [Suspect]
     Dosage: UNK
  2. VENLAFAXINE HYDROCHLORIDE [Concomitant]
     Dosage: 150 MG, UNK
     Dates: start: 20000101

REACTIONS (3)
  - DRUG INTOLERANCE [None]
  - IMPAIRED DRIVING ABILITY [None]
  - ACTIVITIES OF DAILY LIVING IMPAIRED [None]
